FAERS Safety Report 23974722 (Version 3)
Quarter: 2025Q1

REPORT INFORMATION
  Report Type: Spontaneous
  Country: US (occurrence: US)
  Receive Date: 20240614
  Receipt Date: 20250205
  Transmission Date: 20250409
  Serious: Yes (Hospitalization)
  Sender: BAUSCH AND LOMB
  Company Number: US-BAUSCH-BL-2024-007959

PATIENT
  Age: 73 Year
  Sex: Male

DRUGS (2)
  1. XIFAXAN [Suspect]
     Active Substance: RIFAXIMIN
     Indication: Hepatic cirrhosis
     Route: 048
     Dates: end: 2024
  2. XIFAXAN [Suspect]
     Active Substance: RIFAXIMIN
     Route: 048

REACTIONS (3)
  - Hepatic cancer [Unknown]
  - Therapy interrupted [Unknown]
  - Product distribution issue [Unknown]

NARRATIVE: CASE EVENT DATE: 20240701
